FAERS Safety Report 18847495 (Version 1)
Quarter: 2021Q1

REPORT INFORMATION
  Report Type: Spontaneous
  Country: CZ (occurrence: CZ)
  Receive Date: 20210203
  Receipt Date: 20210203
  Transmission Date: 20210419
  Serious: No
  Sender: FDA-Public Use
  Company Number: CZ-EXELIXIS-CABO-20032803

PATIENT
  Sex: Male

DRUGS (2)
  1. CABOMETYX [Suspect]
     Active Substance: CABOZANTINIB S-MALATE
     Indication: RENAL CELL CARCINOMA STAGE IV
     Dosage: UNK
     Dates: start: 201907
  2. CABOMETYX [Suspect]
     Active Substance: CABOZANTINIB S-MALATE
     Dosage: 40 MG, QD

REACTIONS (13)
  - Gastrointestinal inflammation [Recovering/Resolving]
  - Nausea [Recovered/Resolved]
  - Blood calcium decreased [Recovered/Resolved]
  - Palmar-plantar erythrodysaesthesia syndrome [Recovered/Resolved]
  - Hypothyroidism [Unknown]
  - Blood urea increased [Recovering/Resolving]
  - Decreased appetite [Recovered/Resolved]
  - Fatigue [Recovered/Resolved]
  - Blood magnesium decreased [Recovered/Resolved]
  - Abdominal distension [Recovered/Resolved]
  - Hyperthyroidism [Recovering/Resolving]
  - Blood creatine increased [Recovering/Resolving]
  - Asthenia [Recovered/Resolved]

NARRATIVE: CASE EVENT DATE: 201910
